FAERS Safety Report 8848106 (Version 1)
Quarter: 2012Q4

REPORT INFORMATION
  Report Type: 
  Country: US (occurrence: US)
  Receive Date: 20121018
  Receipt Date: 20121018
  Transmission Date: 20130627
  Serious: Yes (Other)
  Sender: FDA-Public Use
  Company Number: US-ROCHE-1139523

PATIENT
  Sex: Male
  Weight: 36.5 kg

DRUGS (3)
  1. PROTROPIN [Suspect]
     Indication: GROWTH HORMONE DEFICIENCY
     Route: 058
  2. PROTROPIN [Suspect]
     Indication: HYPOPITUITARISM
  3. PROTROPIN [Suspect]
     Indication: DWARFISM

REACTIONS (6)
  - Memory impairment [Unknown]
  - Aggression [Unknown]
  - Emotional distress [Unknown]
  - Upper respiratory tract infection [Recovered/Resolved]
  - Weight gain poor [Unknown]
  - Spinal fusion surgery [Unknown]
